FAERS Safety Report 7380029-4 (Version None)
Quarter: 2011Q1

REPORT INFORMATION
  Report Type: 
  Country: None (occurrence: None)
  Receive Date: 20110329
  Receipt Date: 20110318
  Transmission Date: 20110831
  Serious: Yes (Hospitalization, Other)
  Sender: FDA-Public Use
  Company Number: FR-BRISTOL-MYERS SQUIBB COMPANY-15621329

PATIENT
  Age: 77 Year
  Sex: Male

DRUGS (7)
  1. HYDREA [Suspect]
     Route: 048
     Dates: start: 20050101, end: 20110201
  2. FLIXOTIDE [Suspect]
     Route: 055
  3. VOLTAREN [Suspect]
     Dosage: VOLTARENE GEL
     Route: 061
     Dates: end: 20110202
  4. PHENOXYMETHYL PENICILLIN [Suspect]
     Dosage: 1DF=2 INTAKES
     Route: 048
  5. TAREG [Suspect]
     Dosage: 1DF=80 UNITS NOS INT 2FEB11 AND RESTARTED 9FEB11
     Route: 048
  6. MOVIPREP [Suspect]
     Route: 048
  7. ALLOPURINOL [Suspect]
     Dosage: 1DF=ONE INTAKE
     Route: 048

REACTIONS (12)
  - GOUT [None]
  - RENAL FAILURE [None]
  - PAIN IN EXTREMITY [None]
  - EAR INFECTION [None]
  - UROSEPSIS [None]
  - RASH MACULO-PAPULAR [None]
  - OEDEMA PERIPHERAL [None]
  - VENOUS THROMBOSIS LIMB [None]
  - PHLEBITIS DEEP [None]
  - PHLEBITIS [None]
  - FOLLICULITIS [None]
  - PYREXIA [None]
